FAERS Safety Report 10500592 (Version 1)
Quarter: 2014Q4

REPORT INFORMATION
  Report Type: Spontaneous
  Country: US (occurrence: US)
  Receive Date: 20141006
  Receipt Date: 20141006
  Transmission Date: 20150528
  Serious: No
  Sender: FDA-Public Use
  Company Number: US-AMGEN INC.-USASP2014072753

PATIENT
  Age: 87 Year
  Sex: Female

DRUGS (3)
  1. CALCIUM [Concomitant]
     Active Substance: CALCIUM
     Dosage: 1200 MG, QD
  2. PROLIA [Suspect]
     Active Substance: DENOSUMAB
     Indication: OSTEOPOROSIS
     Route: 065
  3. VITAMIN D                          /00107901/ [Concomitant]
     Active Substance: ERGOCALCIFEROL
     Dosage: 2000, UNK, QD

REACTIONS (9)
  - Skin exfoliation [Unknown]
  - Rash maculo-papular [Not Recovered/Not Resolved]
  - Rash erythematous [Not Recovered/Not Resolved]
  - Headache [Unknown]
  - Oropharyngeal pain [Unknown]
  - Malaise [Unknown]
  - Dry skin [Unknown]
  - Drug ineffective [Unknown]
  - Muscle spasms [Unknown]
